FAERS Safety Report 11302182 (Version 1)
Quarter: 2015Q3

REPORT INFORMATION
  Report Type: Spontaneous
  Country: US (occurrence: US)
  Receive Date: 20150722
  Receipt Date: 20150722
  Transmission Date: 20151125
  Serious: Yes (Other)
  Sender: FDA-Public Use
  Company Number: US-ELI_LILLY_AND_COMPANY-US200808001745

PATIENT
  Age: 84 Year
  Sex: Female

DRUGS (3)
  1. BETA BLOCKING AGENTS [Concomitant]
     Active Substance: UNSPECIFIED INGREDIENT
  2. COUMADIN [Concomitant]
     Active Substance: WARFARIN SODIUM
  3. EVISTA [Suspect]
     Active Substance: RALOXIFENE HYDROCHLORIDE
     Indication: OSTEOPOROSIS
     Dosage: 60 MG, DAILY (1/D)

REACTIONS (3)
  - Thrombosis [Recovered/Resolved]
  - Vaginal discharge [Not Recovered/Not Resolved]
  - Skin discolouration [Recovered/Resolved]
